FAERS Safety Report 11444934 (Version 1)
Quarter: 2015Q3

REPORT INFORMATION
  Report Type: Spontaneous
  Country: AR (occurrence: AR)
  Receive Date: 20150902
  Receipt Date: 20150902
  Transmission Date: 20151125
  Serious: Yes (Other)
  Sender: FDA-Public Use
  Company Number: AR-BRISTOL-MYERS SQUIBB COMPANY-BMS-2015-055878

PATIENT
  Age: 54 Year
  Sex: Female

DRUGS (1)
  1. NULOJIX [Suspect]
     Active Substance: BELATACEPT
     Indication: IMMUNOSUPPRESSION
     Dosage: 5 MG/KG, UNK
     Route: 065
     Dates: start: 20140506

REACTIONS (8)
  - Kidney transplant rejection [Unknown]
  - Glomerulonephritis [Unknown]
  - Haematuria [Unknown]
  - Vasculitis [Unknown]
  - Tricuspid valve incompetence [Unknown]
  - Palpable purpura [Unknown]
  - Chronic obstructive pulmonary disease [Unknown]
  - Pulmonary mass [Unknown]

NARRATIVE: CASE EVENT DATE: 201412
